FAERS Safety Report 8876080 (Version 3)
Quarter: 2013Q1

REPORT INFORMATION
  Report Type: Spontaneous
  Country: VN (occurrence: VN)
  Receive Date: 20121030
  Receipt Date: 20130321
  Transmission Date: 20140127
  Serious: Yes (Death)
  Sender: FDA-Public Use
  Company Number: VN-ABBOTT-12P-179-1000422-00

PATIENT
  Age: 0 Year
  Sex: Male

DRUGS (2)
  1. SURVANTA [Suspect]
     Indication: NEONATAL RESPIRATORY DISTRESS SYNDROME
     Route: 037
     Dates: start: 20111011, end: 20111011
  2. SURVANTA [Suspect]
     Indication: PREMATURE BABY

REACTIONS (2)
  - Pulmonary haemorrhage [Fatal]
  - Death neonatal [None]
